FAERS Safety Report 25287143 (Version 1)
Quarter: 2025Q2

REPORT INFORMATION
  Report Type: Spontaneous
  Country: RO (occurrence: RO)
  Receive Date: 20250509
  Receipt Date: 20250509
  Transmission Date: 20250717
  Serious: Yes (Death, Hospitalization)
  Sender: MYLAN
  Company Number: RO-MYLANLABS-2025M1039261

PATIENT
  Age: 79 Year
  Sex: Female

DRUGS (5)
  1. EPINEPHRINE [Suspect]
     Active Substance: EPINEPHRINE
     Indication: Anaphylactic reaction
  2. OXACILLIN [Suspect]
     Active Substance: OXACILLIN SODIUM
     Indication: Staphylococcal infection
     Dosage: 500 MILLIGRAM, Q6H
     Dates: start: 202201
  3. HYDROCORTISONE HEMISUCCINATE [Suspect]
     Active Substance: HYDROCORTISONE HEMISUCCINATE
     Indication: Anaphylactic reaction
  4. IVERMECTIN [Concomitant]
     Active Substance: IVERMECTIN
     Indication: Scabies
  5. SULFUR [Concomitant]
     Active Substance: SULFUR
     Indication: Scabies
     Dosage: UNK, QD
     Dates: start: 202201

REACTIONS (1)
  - Drug ineffective [Fatal]

NARRATIVE: CASE EVENT DATE: 20220101
